FAERS Safety Report 24883368 (Version 1)
Quarter: 2025Q1

REPORT INFORMATION
  Report Type: Spontaneous
  Country: US (occurrence: None)
  Receive Date: 20250123
  Receipt Date: 20250123
  Transmission Date: 20250409
  Serious: Yes (Disabling)
  Sender: FDA-CTU
  Company Number: None

PATIENT
  Age: 82 Year
  Sex: Female
  Weight: 53.9 kg

DRUGS (11)
  1. TRAMADOL [Suspect]
     Active Substance: TRAMADOL
     Indication: Arthralgia
     Route: 048
     Dates: start: 20241125, end: 20241126
  2. LISINOPRIL [Concomitant]
     Active Substance: LISINOPRIL
  3. AMLODIPINE [Concomitant]
     Active Substance: AMLODIPINE BESYLATE
  4. BUSPIRONE [Concomitant]
     Active Substance: BUSPIRONE HYDROCHLORIDE
  5. XIIDRA [Concomitant]
     Active Substance: LIFITEGRAST
  6. FLAXSEED [Concomitant]
     Active Substance: FLAX SEED
  7. FISH OIL [Concomitant]
     Active Substance: FISH OIL
  8. VITAMINS [Concomitant]
     Active Substance: VITAMINS
  9. VITAMIN D NOS [Concomitant]
     Active Substance: CHOLECALCIFEROL\ERGOCALCIFEROL
  10. CALCIUM [Concomitant]
     Active Substance: CALCIUM
  11. SCHIFF MOVE FREE [Concomitant]
     Active Substance: DIETARY SUPPLEMENT

REACTIONS (19)
  - Decreased appetite [None]
  - Skin discolouration [None]
  - Erythema [None]
  - Weight decreased [None]
  - Nausea [None]
  - Pyrexia [None]
  - Night sweats [None]
  - Abnormal dreams [None]
  - Genital herpes [None]
  - Taste disorder [None]
  - Parosmia [None]
  - Hypersomnia [None]
  - Somnolence [None]
  - Epistaxis [None]
  - Cough [None]
  - Petechiae [None]
  - Red blood cell sedimentation rate increased [None]
  - Erythema [None]
  - Eczema [None]

NARRATIVE: CASE EVENT DATE: 20241125
